FAERS Safety Report 10262647 (Version 2)
Quarter: 2014Q2

REPORT INFORMATION
  Report Type: Report from Study
  Country: US (occurrence: US)
  Receive Date: 20140626
  Receipt Date: 20140626
  Transmission Date: 20141212
  Serious: Yes (Other)
  Sender: FDA-Public Use
  Company Number: US-MYLANLABS-2013S1010168

PATIENT
  Age: 40 Year
  Sex: Male

DRUGS (16)
  1. CLOZAPINE TABLETS [Suspect]
     Indication: SCHIZOAFFECTIVE DISORDER
     Dosage: 100MG AM AND NOON, 500MG HS
     Route: 048
     Dates: start: 20120111
  2. CLOZAPINE TABLETS [Suspect]
     Indication: SCHIZOAFFECTIVE DISORDER
     Dosage: AT NOON
     Route: 048
     Dates: start: 20121030
  3. DIVALPROEX SODIUM EXTENDED-RELEASE TABLETS [Suspect]
     Indication: MOOD ALTERED
     Route: 048
     Dates: start: 20110202
  4. RISPERIDONE [Suspect]
     Indication: PSYCHOTIC DISORDER
     Route: 048
     Dates: start: 20110502
  5. RISPERIDONE [Suspect]
     Indication: PSYCHOTIC DISORDER
     Dosage: AT NOON
     Route: 048
     Dates: start: 20110502
  6. CITALOPRAM [Concomitant]
     Indication: SCHIZOAFFECTIVE DISORDER
     Route: 048
     Dates: start: 20110525
  7. CLONAZEPAM [Concomitant]
     Indication: AGITATION
     Dosage: 0.5MG TWICE DAILY AND 1MG AT 1600; AND 0.5MG Q6HR PRN
     Route: 048
     Dates: start: 20110202
  8. FIBERLAX [Concomitant]
     Indication: CONSTIPATION
     Route: 048
     Dates: start: 20110202
  9. FISH OIL [Concomitant]
     Indication: HYPERLIPIDAEMIA
     Route: 048
     Dates: start: 20110202
  10. LISINOPRIL [Concomitant]
     Indication: HYPERTENSION
     Route: 048
     Dates: start: 20110202
  11. TOPIRAMATE [Concomitant]
     Indication: SCHIZOAFFECTIVE DISORDER
     Route: 048
     Dates: start: 20110202
  12. TRIHEXYPHENIDYL [Concomitant]
     Indication: DROOLING
     Dosage: 5MG QAM, 2MG BID
     Route: 048
     Dates: start: 20110202
  13. ACETAMINOPHEN [Concomitant]
     Indication: PAIN
     Dosage: 500-1000MG Q6HR PRN PAIN/FEVER
     Route: 048
     Dates: start: 20120323
  14. BENZTROPINE [Concomitant]
     Indication: DROOLING
     Dosage: HS PRN
     Route: 048
     Dates: start: 20110323
  15. LACTULOSE [Concomitant]
     Indication: CONSTIPATION
     Dosage: HS PRN
     Route: 048
     Dates: start: 20110202
  16. OTHER COMBINATIONS OF NUTRIENTS [Concomitant]
     Dosage: EQUATE NUTRITIONAL DRINK ONCE DAILY IF REQUESTED

REACTIONS (1)
  - Granulocytopenia [Recovered/Resolved]
